FAERS Safety Report 5417151-5 (Version None)
Quarter: 2007Q3

REPORT INFORMATION
  Report Type: 
  Country: None (occurrence: None)
  Receive Date: 20070814
  Receipt Date: 20070807
  Transmission Date: 20080115
  Serious: Yes (Other)
  Sender: FDA-Public Use
  Company Number: 2007328333

PATIENT
  Age: 84 Year
  Sex: Male

DRUGS (2)
  1. SUDAFED 12 HOUR [Suspect]
     Dosage: ONE TABLET EVERY 8 HOURS (1 IN 8 HR), ORAL
     Route: 048
     Dates: start: 20070804, end: 20070806
  2. PENICILLIN [Concomitant]

REACTIONS (1)
  - DYSURIA [None]
